FAERS Safety Report 5978591-9 (Version None)
Quarter: 2008Q4

REPORT INFORMATION
  Report Type: 
  Country: None (occurrence: None)
  Receive Date: 20081204
  Receipt Date: 20081202
  Transmission Date: 20090506
  Serious: Yes (Other)
  Sender: FDA-Public Use
  Company Number: B0547337A

PATIENT
  Age: 10 Year
  Sex: Male

DRUGS (5)
  1. RELENZA [Suspect]
     Indication: INFLUENZA
     Dosage: 10MG PER DAY
     Route: 055
     Dates: start: 20081119, end: 20081119
  2. ASTOMIN [Concomitant]
     Dosage: 30MG PER DAY
     Route: 048
  3. ALLERGIN [Concomitant]
     Dosage: 9MG PER DAY
     Route: 048
  4. MUCOTRON [Concomitant]
     Dosage: 750MG PER DAY
     Route: 048
  5. CALONAL [Concomitant]
     Route: 048

REACTIONS (4)
  - ABNORMAL BEHAVIOUR [None]
  - HYPERHIDROSIS [None]
  - INCOHERENT [None]
  - MEMORY IMPAIRMENT [None]
